FAERS Safety Report 25713095 (Version 1)
Quarter: 2025Q3

REPORT INFORMATION
  Report Type: Spontaneous
  Country: JP (occurrence: JP)
  Receive Date: 20250822
  Receipt Date: 20250822
  Transmission Date: 20251020
  Serious: Yes (Hospitalization, Other)
  Sender: MERCK SHARP & DOHME LLC
  Company Number: JP-009507513-2319752

PATIENT
  Age: 7 Decade
  Sex: Male
  Weight: 63 kg

DRUGS (6)
  1. JANUVIA [Suspect]
     Active Substance: SITAGLIPTIN PHOSPHATE
     Route: 065
  2. AMLODIPINE [Concomitant]
     Active Substance: AMLODIPINE BESYLATE
     Route: 065
  3. ZOLBETUXIMAB [Suspect]
     Active Substance: ZOLBETUXIMAB
     Indication: Gastric cancer
     Route: 065
  4. OXALIPLATIN [Suspect]
     Active Substance: OXALIPLATIN
     Indication: Gastric cancer
     Route: 065
  5. LEUCOVORIN [Concomitant]
     Active Substance: LEUCOVORIN\LEUCOVORIN CALCIUM
     Indication: Gastric cancer
     Route: 065
  6. FLUOROURACIL [Concomitant]
     Active Substance: FLUOROURACIL
     Indication: Gastric cancer
     Route: 065

REACTIONS (10)
  - Gastric cancer [Unknown]
  - Nausea [Recovered/Resolved]
  - Metastases to lymph nodes [Recovered/Resolved]
  - Metastases to peritoneum [Unknown]
  - Therapy partial responder [Unknown]
  - Neutrophil count decreased [Unknown]
  - Drug hypersensitivity [Unknown]
  - Ascites [Recovered/Resolved]
  - Cholecystectomy [Unknown]
  - Hepatectomy [Unknown]
